FAERS Safety Report 5424928-9 (Version None)
Quarter: 2007Q3

REPORT INFORMATION
  Report Type: 
  Country: None (occurrence: None)
  Receive Date: 20070824
  Receipt Date: 20070820
  Transmission Date: 20080115
  Serious: Yes (Death, Hospitalization, Disabling)
  Sender: FDA-Public Use
  Company Number: CI-GILEAD-2007-0011742

PATIENT
  Sex: Male
  Weight: 2.9 kg

DRUGS (12)
  1. TRUVADA [Suspect]
     Indication: PROPHYLAXIS AGAINST HIV INFECTION
     Route: 064
     Dates: start: 20070114, end: 20070114
  2. NEVIRAPINE [Suspect]
     Indication: PROPHYLAXIS AGAINST HIV INFECTION
     Route: 064
     Dates: start: 20070114, end: 20070114
  3. NEVIRAPINE [Suspect]
     Dates: start: 20070114, end: 20070116
  4. ZIDOVUDINE [Suspect]
     Indication: PROPHYLAXIS AGAINST HIV INFECTION
     Route: 064
     Dates: start: 20061103, end: 20070114
  5. ZIDOVUDINE [Suspect]
     Dates: start: 20070114, end: 20070121
  6. KANEURON [Suspect]
     Indication: FOETAL DISTRESS SYNDROME
     Dates: start: 20070117, end: 20070223
  7. ARFOL [Suspect]
     Indication: FOETAL DISTRESS SYNDROME
     Dates: start: 20070117, end: 20070218
  8. UVESTEROL [Suspect]
     Indication: FOETAL DISTRESS SYNDROME
     Dates: start: 20070117, end: 20070417
  9. DEPAKENE [Suspect]
     Indication: MUSCLE SPASMS
     Dates: start: 20070307, end: 20070410
  10. DEPAKENE [Suspect]
     Dates: start: 20070411
  11. MAXILASE [Suspect]
     Indication: LARYNGOMALACIA
     Dates: start: 20070412
  12. CURAM [Suspect]
     Indication: LARYNGOMALACIA
     Dates: start: 20070412, end: 20070424

REACTIONS (3)
  - INFANTILE SPASMS [None]
  - LARYNGOMALACIA [None]
  - RESPIRATORY DISTRESS [None]
